FAERS Safety Report 21088337 (Version 1)
Quarter: 2022Q3

REPORT INFORMATION
  Report Type: Spontaneous
  Country: US (occurrence: None)
  Receive Date: 20220715
  Receipt Date: 20220715
  Transmission Date: 20221027
  Serious: Yes (Hospitalization)
  Sender: FDA-Public Use
  Company Number: None

PATIENT
  Sex: Male
  Weight: 69.1 kg

DRUGS (3)
  1. CISPLATIN [Suspect]
     Active Substance: CISPLATIN
     Dates: end: 20220604
  2. IFOSFAMIDE [Suspect]
     Active Substance: IFOSFAMIDE
     Dates: end: 20220604
  3. TAXOL [Suspect]
     Active Substance: PACLITAXEL
     Dates: end: 20220531

REACTIONS (8)
  - Dizziness [None]
  - Pancytopenia [None]
  - Hyponatraemia [None]
  - Aspartate aminotransferase increased [None]
  - Alanine aminotransferase increased [None]
  - Blood alkaline phosphatase increased [None]
  - Orthostatic hypotension [None]
  - Fatigue [None]

NARRATIVE: CASE EVENT DATE: 20220607
